FAERS Safety Report 11987617 (Version 1)
Quarter: 2016Q1

REPORT INFORMATION
  Report Type: Report from Study
  Country: US (occurrence: US)
  Receive Date: 20160202
  Receipt Date: 20160202
  Transmission Date: 20160526
  Serious: No
  Sender: FDA-Public Use
  Company Number: US-AMGEN-USASL2016009043

PATIENT
  Age: 49 Year
  Sex: Female

DRUGS (2)
  1. ENBREL [Suspect]
     Active Substance: ETANERCEPT
     Indication: RHEUMATOID ARTHRITIS
     Dosage: 50 MG, QWK
     Route: 065
     Dates: start: 2005
  2. METHOTREXATE [Concomitant]
     Active Substance: METHOTREXATE
     Dosage: UNK

REACTIONS (13)
  - Skin atrophy [Unknown]
  - Drug effect incomplete [Unknown]
  - Foreign body in eye [Recovered/Resolved]
  - Sinus disorder [Unknown]
  - Spinal disorder [Unknown]
  - Skin haemorrhage [Unknown]
  - Eye inflammation [Unknown]
  - Increased tendency to bruise [Unknown]
  - Irritable bowel syndrome [Unknown]
  - Epistaxis [Unknown]
  - Gastrooesophageal reflux disease [Unknown]
  - Fractured sacrum [Unknown]
  - Tooth fracture [Unknown]

NARRATIVE: CASE EVENT DATE: 2005
